FAERS Safety Report 12919289 (Version 5)
Quarter: 2020Q1

REPORT INFORMATION
  Report Type: Spontaneous
  Country: US (occurrence: US)
  Receive Date: 20161108
  Receipt Date: 20200212
  Transmission Date: 20200409
  Serious: Yes (Hospitalization, Other)
  Sender: FDA-Public Use
  Company Number: US-PFIZER INC-2016202529

PATIENT
  Age: 50 Year
  Sex: Male
  Weight: 98.87 kg

DRUGS (4)
  1. VFEND [Suspect]
     Active Substance: VORICONAZOLE
     Indication: RIFT VALLEY FEVER
     Dosage: 200 MG, 2X/DAY
     Route: 048
  2. GABAPENTIN. [Concomitant]
     Active Substance: GABAPENTIN
     Dosage: UNK
  3. METFORMIN [Concomitant]
     Active Substance: METFORMIN HYDROCHLORIDE
     Dosage: UNK
  4. VFEND [Suspect]
     Active Substance: VORICONAZOLE
     Indication: COCCIDIOIDOMYCOSIS
     Dosage: 100 MG, 100MG IN THE MORNING AND 100MG AT NIGHT
     Route: 048
     Dates: start: 2000

REACTIONS (5)
  - Limb mass [Recovered/Resolved]
  - Off label use [Unknown]
  - Tracheal mass [Recovered/Resolved]
  - Product use in unapproved indication [Unknown]
  - Neoplasm [Recovered/Resolved with Sequelae]

NARRATIVE: CASE EVENT DATE: 2000
